FAERS Safety Report 17358863 (Version 2)
Quarter: 2020Q1

REPORT INFORMATION
  Report Type: Spontaneous
  Country: US (occurrence: US)
  Receive Date: 20200202
  Receipt Date: 20200330
  Transmission Date: 20200409
  Serious: No
  Sender: FDA-Public Use
  Company Number: US-009507513-2001USA007022

PATIENT
  Age: 38 Year
  Sex: Female

DRUGS (2)
  1. PREGNYL [Suspect]
     Active Substance: CHORIOGONADOTROPIN ALFA
     Indication: IN VITRO FERTILISATION
     Dosage: 5000 UNITS ONCE, 6 TIMES IN THE PAST
     Route: 030
  2. PREGNYL [Suspect]
     Active Substance: CHORIOGONADOTROPIN ALFA
     Dosage: 5000 UNITS ONCE
     Route: 030
     Dates: start: 20191212, end: 20191212

REACTIONS (2)
  - Anovulatory cycle [Recovering/Resolving]
  - Product packaging quantity issue [Unknown]

NARRATIVE: CASE EVENT DATE: 20191214
